FAERS Safety Report 8064249-1 (Version None)
Quarter: 2011Q4

REPORT INFORMATION
  Report Type: 
  Country: None (occurrence: None)
  Receive Date: 20111221
  Receipt Date: 20110920
  Transmission Date: 20120403
  Serious: Yes (Other)
  Sender: FDA-Public Use
  Company Number: 2011S1000067

PATIENT
  Age: 45 Year
  Sex: Male
  Weight: 102.0593 kg

DRUGS (6)
  1. KRYSTEXXA [Suspect]
     Indication: GOUT
     Dosage: MG;X1; IV; X1; IV
     Route: 042
     Dates: start: 20110801, end: 20110801
  2. KRYSTEXXA [Suspect]
     Indication: GOUT
     Dosage: MG;X1; IV; X1; IV
     Route: 042
     Dates: start: 20110826, end: 20110826
  3. BENADRYL [Concomitant]
  4. CLARITIN /00917501/ [Concomitant]
  5. TYLENOL (CAPLET) [Concomitant]
  6. SOLU-MEDROL [Concomitant]

REACTIONS (3)
  - TREATMENT NONCOMPLIANCE [None]
  - BLOOD URIC ACID INCREASED [None]
  - INFUSION RELATED REACTION [None]
